FAERS Safety Report 7409884-6 (Version None)
Quarter: 2011Q2

REPORT INFORMATION
  Report Type: 
  Country: None (occurrence: None)
  Receive Date: 20110412
  Receipt Date: 20110407
  Transmission Date: 20111010
  Serious: Yes (Hospitalization)
  Sender: FDA-Public Use
  Company Number: JP-ABBOTT-11P-087-0715310-00

PATIENT
  Sex: Male
  Weight: 57 kg

DRUGS (2)
  1. HUMIRA [Suspect]
     Indication: PSORIASIS
     Route: 058
     Dates: start: 20100217, end: 20101222
  2. BEPOTASTINE BESILATE [Concomitant]
     Indication: RHINITIS ALLERGIC
     Dosage: 20MG DAILY
     Route: 048
     Dates: start: 20100321, end: 20100421

REACTIONS (2)
  - LUNG DISORDER [None]
  - METASTATIC GASTRIC CANCER [None]
